FAERS Safety Report 4700933-2 (Version None)
Quarter: 2005Q2

REPORT INFORMATION
  Report Type: 
  Country: None (occurrence: None)
  Receive Date: 20050113
  Receipt Date: 20050113
  Transmission Date: 20051028
  Serious: Yes (Other)
  Sender: FDA-Public Use
  Company Number: None

PATIENT
  Sex: Female
  Weight: 57.1532 kg

DRUGS (3)
  1. ALPRAZOLAM [Suspect]
     Indication: PANIC ATTACK
     Dosage: 0.25 MG PO TID + ONE @ HS
     Route: 048
     Dates: start: 20011109
  2. ALPRAZOLAM [Suspect]
     Indication: PANIC ATTACK
     Dosage: 0.25 MG PO TID + ONE @ HS
     Route: 048
     Dates: start: 20020613
  3. ALPRAZOLAM [Suspect]
     Indication: PANIC ATTACK
     Dosage: 0.25 MG PO TID + ONE @ HS
     Route: 048
     Dates: start: 20031203

REACTIONS (2)
  - DRUG INEFFECTIVE [None]
  - THERAPEUTIC RESPONSE UNEXPECTED WITH DRUG SUBSTITUTION [None]
